FAERS Safety Report 9252494 (Version 1)
Quarter: 2013Q1

REPORT INFORMATION
  Report Type: Spontaneous
  Country: US (occurrence: None)
  Receive Date: 20130305
  Receipt Date: 20130305
  Transmission Date: 20140127
  Serious: Yes (Other)
  Sender: FDA-Public Use
  Company Number: 163-21880-12083252

PATIENT
  Age: 72 Year
  Sex: Male
  Weight: 88.45 kg

DRUGS (24)
  1. REVLIMID [Suspect]
     Indication: PLASMA CELL MYELOMA
     Dosage: 25MG, 14 IN 21 D, PO
     Route: 048
     Dates: start: 20110819
  2. ASA (ACETYLSALICYLIC ACID) [Concomitant]
  3. ALEVE (NAPROXEN SODIUM) [Concomitant]
  4. B COMPLEX (BECOSYM FORTE) [Concomitant]
  5. CALCIUM (CALCIUM) [Concomitant]
  6. COQ10 (OSIDECARENONE) [Concomitant]
  7. FLAXSEED OIL (LINSEED OIL) [Concomitant]
  8. FLOMAX (TAMSULOSIN HYDROCHLORIDE) [Concomitant]
  9. GABAPENTIN (GABAPENTIN) [Concomitant]
  10. GLUCO/CHOND (GLUCOSAMINE W/ CHONDROITIN SULFATE) [Concomitant]
  11. LIPITOR (ATORVASTATIN0 [Concomitant]
  12. VITAMINS [Concomitant]
  13. NEXIUM [Concomitant]
  14. OMEGA (OMEGA) [Concomitant]
  15. OXYCONTIN (OXYCODONE HYDROCHLORIDE) [Concomitant]
  16. PANTANOL (ALL OTHER THERAPEUTIC PRODUCTS) [Concomitant]
  17. POTASSIUM (POTASSIUM) [Concomitant]
  18. SENOKOT (SENNA FRUIT) [Concomitant]
  19. VITAMIN C [Concomitant]
  20. VITAMIN D (COLECALCIFEROL) [Concomitant]
  21. VITAMIN E (TOCOPHEROL) [Concomitant]
  22. SELENIUM (SELENIUM) [Concomitant]
  23. UNK [Concomitant]
  24. STOOL SOFTENER (DOCUSATE SODIUM) [Concomitant]

REACTIONS (1)
  - Gait disturbance [None]
